FAERS Safety Report 23656323 (Version 1)
Quarter: 2024Q1

REPORT INFORMATION
  Report Type: Spontaneous
  Country: ES (occurrence: ES)
  Receive Date: 20240321
  Receipt Date: 20240321
  Transmission Date: 20240410
  Serious: Yes (Other)
  Sender: FDA-Public Use
  Company Number: ES-AEMPS-1496422

PATIENT
  Age: 61 Year
  Sex: Female
  Weight: 92 kg

DRUGS (4)
  1. ENALAPRIL [Suspect]
     Active Substance: ENALAPRIL
     Indication: Essential hypertension
     Dosage: 10 MILLIGRAM, DECE
     Route: 048
     Dates: start: 20230523
  2. SITAGLIPTIN PHOSPHATE [Concomitant]
     Active Substance: SITAGLIPTIN PHOSPHATE
     Indication: Type 2 diabetes mellitus
     Dosage: 100 MILLIGRAM, ONCE A DAY
     Route: 048
     Dates: start: 20230613
  3. Simvastatin aurovitas [Concomitant]
     Indication: Hypercholesterolaemia
     Dosage: 10 MILLIGRAM,CE
     Route: 048
     Dates: start: 20180831
  4. Metformina Kern Pharma [Concomitant]
     Indication: Type 2 diabetes mellitus
     Dosage: 1000 MILLIGRAM,DECE
     Route: 048
     Dates: start: 20230719

REACTIONS (1)
  - Psoriasis [Recovering/Resolving]

NARRATIVE: CASE EVENT DATE: 20230701
